FAERS Safety Report 4831120-5 (Version None)
Quarter: 2005Q4

REPORT INFORMATION
  Report Type: 
  Country: None (occurrence: None)
  Receive Date: 20051114
  Receipt Date: 20051103
  Transmission Date: 20060501
  Serious: Yes (Death)
  Sender: FDA-Public Use
  Company Number: 2005-11-0109

PATIENT
  Age: 57 Year
  Sex: Male

DRUGS (8)
  1. PEG-INTRON [Suspect]
     Indication: HEPATITIS C
     Dosage: SUBCUTANEOUS
     Route: 058
  2. RIBAVIRIN [Suspect]
     Indication: HEPATITIS C
     Dosage: ORAL
     Route: 048
  3. METHADONE [Concomitant]
  4. LOSEC [Concomitant]
  5. IMOVANE [Concomitant]
  6. CELEXA [Concomitant]
  7. CLONIDINE [Concomitant]
  8. VALIUM [Concomitant]

REACTIONS (1)
  - DEATH [None]
